FAERS Safety Report 8054264-6 (Version None)
Quarter: 2012Q1

REPORT INFORMATION
  Report Type: 
  Country: None (occurrence: None)
  Receive Date: 20120118
  Receipt Date: 20120110
  Transmission Date: 20120608
  Serious: Yes (Other)
  Sender: FDA-Public Use
  Company Number: PHHY2011JP111389

PATIENT
  Sex: Male

DRUGS (5)
  1. DICLOFENAC SODIUM [Suspect]
     Dosage: UNK
  2. OFLOXACIN [Suspect]
     Dosage: UNK
  3. CEFACLOR [Suspect]
     Dosage: UNK
  4. LOXOPROFEN [Suspect]
     Dosage: UNK
  5. BENZBROMARONE [Suspect]
     Dosage: UNK

REACTIONS (3)
  - AUTOIMMUNE HEPATITIS [None]
  - ALANINE AMINOTRANSFERASE INCREASED [None]
  - BLOOD IMMUNOGLOBULIN G INCREASED [None]
